FAERS Safety Report 18264331 (Version 3)
Quarter: 2021Q2

REPORT INFORMATION
  Report Type: Spontaneous
  Country: JP (occurrence: JP)
  Receive Date: 20200914
  Receipt Date: 20210521
  Transmission Date: 20210717
  Serious: Yes (Death, Hospitalization)
  Sender: FDA-Public Use
  Company Number: JP-009507513-2009JPN004994

PATIENT
  Age: 71 Year
  Sex: Male
  Weight: 79.8 kg

DRUGS (8)
  1. ETELCALCETIDE [Suspect]
     Active Substance: ETELCALCETIDE
     Indication: HYPERPARATHYROIDISM SECONDARY
     Dosage: 2.5 MG, Q56H
     Route: 010
     Dates: start: 20180619, end: 20180929
  2. FOSRENOL [Concomitant]
     Active Substance: LANTHANUM CARBONATE
     Dosage: 750 MG, EVERYDAY
     Route: 048
  3. FOSAPREPITANT DIMEGLUMINE. [Suspect]
     Active Substance: FOSAPREPITANT DIMEGLUMINE
     Dosage: UNK
     Route: 041
     Dates: start: 20200421
  4. EPOGIN [Concomitant]
     Active Substance: ERYTHROPOIETIN
     Dosage: 2250 IU, QW
     Route: 065
  5. KEYTRUDA [Suspect]
     Active Substance: PEMBROLIZUMAB
     Indication: LUNG NEOPLASM MALIGNANT
     Dosage: UNK
     Route: 041
     Dates: start: 20200421
  6. MAXACALCITOL [Concomitant]
     Active Substance: MAXACALCITOL
     Dosage: 2.5 UG, Q56H
     Route: 065
  7. OXAROL [Concomitant]
     Active Substance: MAXACALCITOL
     Dosage: 5 MICROG, Q56H
     Route: 065
  8. CALCIUM CARBONATE. [Concomitant]
     Active Substance: CALCIUM CARBONATE
     Dosage: 2250 MG, EVERYDAY
     Route: 048

REACTIONS (2)
  - Lung neoplasm malignant [Fatal]
  - Interstitial lung disease [Not Recovered/Not Resolved]

NARRATIVE: CASE EVENT DATE: 20200323
